FAERS Safety Report 6744450-7 (Version None)
Quarter: 2010Q2

REPORT INFORMATION
  Report Type: 
  Country: None (occurrence: None)
  Receive Date: 20100527
  Receipt Date: 20100517
  Transmission Date: 20101027
  Serious: Yes (Other)
  Sender: FDA-Public Use
  Company Number: US-PFIZER INC-2010062097

PATIENT
  Sex: Female
  Weight: 95.238 kg

DRUGS (2)
  1. DEPO-PROVERA [Suspect]
     Indication: CONTRACEPTION
     Dosage: UNK
     Dates: start: 20071201, end: 20080301
  2. AMOXICILLIN [Suspect]
     Indication: INFECTION
     Dosage: UNK

REACTIONS (24)
  - ACNE [None]
  - BREAST CYST [None]
  - BRONCHOSPASM [None]
  - DEPRESSION [None]
  - DIZZINESS [None]
  - DRUG INEFFECTIVE [None]
  - DYSMENORRHOEA [None]
  - DYSPEPSIA [None]
  - FIBROCYSTIC BREAST DISEASE [None]
  - FURUNCLE [None]
  - GASTRIC ULCER [None]
  - IMMUNE SYSTEM DISORDER [None]
  - IRRITABLE BOWEL SYNDROME [None]
  - LYMPH GLAND INFECTION [None]
  - METRORRHAGIA [None]
  - MIGRAINE [None]
  - OPPORTUNISTIC INFECTION [None]
  - PHARYNGITIS [None]
  - SPLEEN DISORDER [None]
  - THYROID CYST [None]
  - URINARY TRACT INFECTION [None]
  - UTERINE POLYP [None]
  - VAGINAL DISORDER [None]
  - WEIGHT INCREASED [None]
